FAERS Safety Report 26075503 (Version 1)
Quarter: 2025Q4

REPORT INFORMATION
  Report Type: Spontaneous
  Country: EU (occurrence: EU)
  Receive Date: 20251121
  Receipt Date: 20251121
  Transmission Date: 20260118
  Serious: Yes (Hospitalization, Other)
  Sender: MYLAN
  Company Number: EU-MYLANLABS-2025M1098991

PATIENT
  Age: 30 Year
  Sex: Male
  Weight: 84.5 kg

DRUGS (4)
  1. CLOZAPINE [Suspect]
     Active Substance: CLOZAPINE
     Indication: Product used for unknown indication
     Dosage: UNK
  2. FLUVOXAMINE [Concomitant]
     Active Substance: FLUVOXAMINE
     Dosage: UNK UNK, BID (1 PLUS 0 PLUS 2)
  3. OLANZAPINE [Concomitant]
     Active Substance: OLANZAPINE
     Dosage: 1 DOSAGE FORM, PM (0 PLUS 0 PLUS 0 PLUS 1)
  4. TOPIRAMATE [Concomitant]
     Active Substance: TOPIRAMATE
     Dosage: 1 DOSAGE FORM, BID (1 PLUS 0 PLUS 1)

REACTIONS (3)
  - Hallucination, auditory [Unknown]
  - Schizophrenia [Unknown]
  - Self-injurious ideation [Unknown]
